FAERS Safety Report 15373648 (Version 5)
Quarter: 2019Q1

REPORT INFORMATION
  Report Type: Spontaneous
  Country: US (occurrence: US)
  Receive Date: 20180912
  Receipt Date: 20190306
  Transmission Date: 20190417
  Serious: No
  Sender: FDA-Public Use
  Company Number: US-PFIZER INC-2018364364

PATIENT
  Age: 63 Year
  Sex: Female
  Weight: 67 kg

DRUGS (9)
  1. PREMARIN [Suspect]
     Active Substance: ESTROGENS, CONJUGATED
     Indication: STENOSIS
  2. IRBESARTAN. [Concomitant]
     Active Substance: IRBESARTAN
     Indication: BLOOD PRESSURE ABNORMAL
     Dosage: 300 MG, 1X/DAY (NIGHTLY)
     Route: 048
  3. VITAMIN D [Concomitant]
     Active Substance: CHOLECALCIFEROL
     Indication: BONE DISORDER
     Dosage: 2000 MG, DAILY
     Route: 048
  4. PREMARIN [Suspect]
     Active Substance: ESTROGENS, CONJUGATED
     Indication: ATROPHIC VULVOVAGINITIS
  5. TRIAMTERENE AND HYDROCHLOROTHIAZID [Concomitant]
     Active Substance: HYDROCHLOROTHIAZIDE\TRIAMTERENE
     Indication: BLOOD PRESSURE ABNORMAL
     Dosage: UNK UNK, 1X/DAY (TRIAMTERENE 37.5 MG-HYDROCHLOROTHIAZIDE 25 MG)
     Route: 048
  6. PREMARIN [Suspect]
     Active Substance: ESTROGENS, CONJUGATED
     Indication: HAEMATURIA
     Dosage: UNK, 2X/WEEK (USED JUST LIKE A TAMPON USUALLY RIGHT BEFORE BED),(1.0 ON APPLICATION)
     Dates: start: 20180701
  7. PREMARIN [Suspect]
     Active Substance: ESTROGENS, CONJUGATED
     Indication: VULVOVAGINAL DRYNESS
  8. PREMARIN [Suspect]
     Active Substance: ESTROGENS, CONJUGATED
     Indication: ATROPHIC VULVOVAGINITIS
     Dosage: UNK, DAILY (INSERT HALF APPLICATOR VAGINALLY DAILY FOR 14 DAYS TO START)
     Route: 067
     Dates: start: 20180701
  9. PREMARIN [Suspect]
     Active Substance: ESTROGENS, CONJUGATED
     Indication: DYSPAREUNIA
     Dosage: UNK, 2X/WEEK (INSERT 1/2 APPLICATION TWICE WEEKLY VAGINALLY )
     Route: 067
     Dates: start: 20180629, end: 20181227

REACTIONS (12)
  - Pollakiuria [Unknown]
  - Vulvovaginal burning sensation [Unknown]
  - Pruritus [Not Recovered/Not Resolved]
  - Skin irritation [Not Recovered/Not Resolved]
  - Cystitis [Unknown]
  - Product complaint [Unknown]
  - Depression [Unknown]
  - Burning sensation [Not Recovered/Not Resolved]
  - Product use issue [Unknown]
  - Poor quality product administered [Unknown]
  - Feeling abnormal [Unknown]
  - Condition aggravated [Unknown]

NARRATIVE: CASE EVENT DATE: 201807
